FAERS Safety Report 20631732 (Version 1)
Quarter: 2022Q1

REPORT INFORMATION
  Report Type: Spontaneous
  Country: US (occurrence: None)
  Receive Date: 20220323
  Receipt Date: 20220323
  Transmission Date: 20220423
  Serious: Yes (Disabling)
  Sender: FDA-Public Use
  Company Number: None

PATIENT
  Age: 18 Year
  Sex: Male
  Weight: 93.6 kg

DRUGS (6)
  1. FIRDAPSE [Suspect]
     Active Substance: AMIFAMPRIDINE PHOSPHATE
     Indication: Myasthenic syndrome
     Dosage: OTHER QUANTITY : 2 TABLET(S);?FREQUENCY : 4 TIMES A DAY;?
     Route: 048
     Dates: start: 20220312
  2. FERDAPSE [Concomitant]
  3. MESTINON [Concomitant]
     Active Substance: PYRIDOSTIGMINE BROMIDE
  4. PREDNISONE [Concomitant]
     Active Substance: PREDNISONE
  5. ABSORBABLE CALCIUM PLUS VITAMIN D3 [Concomitant]
  6. OMEGA 3 FISH OIL PLUS VITAMIN D3 [Concomitant]

REACTIONS (5)
  - Drug ineffective [None]
  - Educational problem [None]
  - General physical health deterioration [None]
  - Muscle atrophy [None]
  - Product substitution issue [None]

NARRATIVE: CASE EVENT DATE: 20220312
